FAERS Safety Report 8618593-7 (Version None)
Quarter: 2012Q3

REPORT INFORMATION
  Report Type: 
  Country: None (occurrence: None)
  Receive Date: 20120824
  Receipt Date: 20120813
  Transmission Date: 20120928
  Serious: Yes (Other)
  Sender: FDA-Public Use
  Company Number: US-ACCORD-014501

PATIENT
  Weight: 1.95 kg

DRUGS (4)
  1. FLUOROURACIL [Suspect]
     Indication: BREAST CANCER STAGE I
     Route: 064
  2. ADRIAMYCIN PFS [Suspect]
     Indication: BREAST CANCER STAGE I
     Route: 064
  3. PACLITAXEL [Suspect]
     Indication: BREAST CANCER STAGE I
     Route: 064
  4. CYTOXAN [Suspect]
     Indication: BREAST CANCER STAGE I
     Route: 064

REACTIONS (1)
  - FOETAL GROWTH RESTRICTION [None]
